FAERS Safety Report 4571926-3 (Version None)
Quarter: 2005Q1

REPORT INFORMATION
  Report Type: 
  Country: None (occurrence: None)
  Receive Date: 20050203
  Receipt Date: 20050203
  Transmission Date: 20050727
  Serious: Yes (Other)
  Sender: FDA-Public Use
  Company Number: None

PATIENT
  Age: 55 Year
  Sex: Male
  Weight: 72.5755 kg

DRUGS (6)
  1. VIAGRA [Suspect]
     Indication: ERECTILE DYSFUNCTION
     Dosage: 100 MG 1-2 PER MONTH
     Dates: start: 20021201, end: 20030501
  2. DILTIAZEM [Concomitant]
  3. HYDROCHLOROTHIAZIDE [Concomitant]
  4. LORAZEPAM [Concomitant]
  5. PAROXETINE HCL [Concomitant]
  6. TRAZODONE [Concomitant]

REACTIONS (2)
  - DEFORMITY [None]
  - PENIS DISORDER [None]
